FAERS Safety Report 4706014-6 (Version None)
Quarter: 2005Q2

REPORT INFORMATION
  Report Type: 
  Country: None (occurrence: None)
  Receive Date: 20050627
  Receipt Date: 20040812
  Transmission Date: 20051028
  Serious: Yes (Hospitalization)
  Sender: FDA-Public Use
  Company Number: US-JNJFOC-20040804397

PATIENT
  Age: 38 Year
  Sex: Male

DRUGS (2)
  1. DURAGESIC-100 [Suspect]
     Indication: PAIN
     Dosage: 50 UG/HR, 1 IN 72 HOUR, ORAL; 250 UG/HR, ORAL
     Route: 048
     Dates: start: 20040811, end: 20040811
  2. DURAGESIC-100 [Suspect]
     Indication: PAIN
     Dosage: 250 UG/HR, ORAL
     Route: 048
     Dates: start: 20040811, end: 20040811

REACTIONS (2)
  - DRUG ABUSER [None]
  - RESPIRATORY DEPRESSION [None]
